FAERS Safety Report 7816167-9 (Version None)
Quarter: 2011Q4

REPORT INFORMATION
  Report Type: 
  Country: None (occurrence: None)
  Receive Date: 20111015
  Receipt Date: 20111004
  Transmission Date: 20120403
  Serious: Yes (Death, Hospitalization)
  Sender: FDA-Public Use
  Company Number: GB-ROCHE-800908

PATIENT
  Sex: Female

DRUGS (6)
  1. MABTHERA [Suspect]
     Indication: RHEUMATOID ARTHRITIS
     Dosage: HAD RECEIVED 2 COURSES OF MABTHERA
     Route: 042
  2. NICORANDIL [Concomitant]
     Indication: ANGINA PECTORIS
     Route: 048
  3. PREDNISONE [Concomitant]
     Indication: RHEUMATOID ARTHRITIS
     Route: 048
  4. FOLIC ACID [Concomitant]
     Indication: RHEUMATOID ARTHRITIS
  5. METHOTREXATE [Concomitant]
     Indication: RHEUMATOID ARTHRITIS
     Route: 048
  6. ALBUTEROL [Concomitant]
     Indication: ASTHMA

REACTIONS (5)
  - CARDIAC ARREST [None]
  - DYSPNOEA [None]
  - PYREXIA [None]
  - ASTHMA [None]
  - DEATH [None]
